FAERS Safety Report 4426272-5 (Version None)
Quarter: 2004Q3

REPORT INFORMATION
  Report Type: 
  Country: None (occurrence: None)
  Receive Date: 20040811
  Receipt Date: 20040722
  Transmission Date: 20050211
  Serious: Yes (Hospitalization)
  Sender: FDA-Public Use
  Company Number: A04200400666

PATIENT
  Age: 53 Year
  Sex: Male

DRUGS (5)
  1. KERLONE [Suspect]
     Indication: HYPERTENSION
     Dosage: 10 MG OD, ORAL
     Route: 048
     Dates: end: 20030916
  2. ACTRAPID HUMAN - (INSULIN HUMAN) [Suspect]
     Indication: DIABETES MELLITUS NON-INSULIN-DEPENDENT
     Dosage: SUBCUTANEOUS
     Route: 058
     Dates: start: 20000101, end: 20030916
  3. LANTUS [Suspect]
     Indication: DIABETES MELLITUS NON-INSULIN-DEPENDENT
     Dosage: SUBCUTANEOUS
     Route: 058
     Dates: start: 20000101, end: 20030916
  4. (GLIBENCLAMIDE) [Suspect]
     Indication: DIABETES MELLITUS NON-INSULIN-DEPENDENT
     Dosage: 1.75 MG BID, ORAL
     Route: 048
     Dates: end: 20030916
  5. METFORMIN HCL [Suspect]
     Indication: DIABETES MELLITUS NON-INSULIN-DEPENDENT
     Dosage: 850 MG BID, ORAL
     Route: 048

REACTIONS (3)
  - DRUG INTERACTION [None]
  - HYPOGLYCAEMIC COMA [None]
  - HYPOKALAEMIA [None]
